FAERS Safety Report 8152062-6 (Version None)
Quarter: 2012Q1

REPORT INFORMATION
  Report Type: 
  Country: None (occurrence: None)
  Receive Date: 20120221
  Receipt Date: 20120217
  Transmission Date: 20120608
  Serious: Yes (Hospitalization)
  Sender: FDA-Public Use
  Company Number: BR-PFIZER INC-2012043557

PATIENT
  Age: 61 Year
  Sex: Female

DRUGS (2)
  1. PLAVIX [Concomitant]
     Indication: CARDIAC DISORDER
     Dosage: UNK
  2. LYRICA [Suspect]
     Indication: PAIN IN EXTREMITY
     Dosage: 300 MG, 2X/DAY
     Route: 048
     Dates: start: 20100817

REACTIONS (1)
  - NEUROMA [None]
